FAERS Safety Report 7011768-2 (Version None)
Quarter: 2010Q3

REPORT INFORMATION
  Report Type: 
  Country: None (occurrence: None)
  Receive Date: 20100923
  Receipt Date: 20090723
  Transmission Date: 20110219
  Serious: No
  Sender: FDA-Public Use
  Company Number: US-WYE-H10299509

PATIENT
  Sex: Female
  Weight: 63.56 kg

DRUGS (4)
  1. PREMARIN [Suspect]
     Indication: BURNING SENSATION
     Route: 048
     Dates: start: 19980101
  2. FLONASE [Concomitant]
  3. KLONOPIN [Concomitant]
  4. LAMICTAL [Interacting]

REACTIONS (2)
  - DRUG INEFFECTIVE [None]
  - DRUG INTERACTION [None]
